FAERS Safety Report 6980145-2 (Version None)
Quarter: 2010Q3

REPORT INFORMATION
  Report Type: 
  Country: None (occurrence: None)
  Receive Date: 20100914
  Receipt Date: 20100901
  Transmission Date: 20110219
  Serious: No
  Sender: FDA-Public Use
  Company Number: US-B.I. PHARMACEUTICALS,INC./RIDGEFIELD-2010-BP-08927BP

PATIENT
  Sex: Female
  Weight: 46.27 kg

DRUGS (11)
  1. SPIRIVA [Suspect]
     Indication: ASTHMA
     Dosage: 18 MCG
     Route: 055
     Dates: start: 20100501
  2. SPIRIVA [Suspect]
     Indication: CHRONIC OBSTRUCTIVE PULMONARY DISEASE
  3. ADVAIR DISKUS 100/50 [Concomitant]
     Indication: BRONCHITIS CHRONIC
  4. ADVAIR DISKUS 100/50 [Concomitant]
     Indication: PNEUMONIA
  5. SIMVASTATIN [Concomitant]
     Indication: BLOOD CHOLESTEROL INCREASED
  6. NASONEX [Concomitant]
     Indication: BRONCHITIS CHRONIC
  7. NASONEX [Concomitant]
     Indication: PNEUMONIA
  8. ZYRTEC [Concomitant]
     Indication: BRONCHITIS CHRONIC
  9. ZYRTEC [Concomitant]
     Indication: PNEUMONIA
  10. OGEN [Concomitant]
  11. PROVERA [Concomitant]

REACTIONS (6)
  - BRONCHITIS [None]
  - DRUG INEFFECTIVE [None]
  - DRY MOUTH [None]
  - NASOPHARYNGITIS [None]
  - PNEUMONIA [None]
  - URINARY RETENTION [None]
